FAERS Safety Report 8780429 (Version 1)
Quarter: 2012Q4

REPORT INFORMATION
  Report Type: Spontaneous
  Country: IT (occurrence: None)
  Receive Date: 20120830
  Receipt Date: 20120830
  Transmission Date: 20130627
  Serious: Yes (Death, Hospitalization)
  Sender: FDA-Public Use
  Company Number: 2012AP002733

PATIENT
  Age: 79 Year
  Sex: Female

DRUGS (7)
  1. RAMIPRIL (RAMIPRIL) [Suspect]
  2. KETOPROFEN [Suspect]
     Route: 048
  3. FUROSEMIDE [Suspect]
  4. CIPROFLOXACIN HYDROCHLORIDE [Suspect]
  5. ASPIRIN [Suspect]
  6. OMEPRAZOLE [Suspect]
  7. CARVEDILOL [Suspect]

REACTIONS (8)
  - Renal failure acute [None]
  - Depressive symptom [None]
  - Cystitis [None]
  - Musculoskeletal pain [None]
  - Decreased appetite [None]
  - Swelling face [None]
  - Cardiac failure [None]
  - Pleural effusion [None]
